FAERS Safety Report 7477892-5 (Version None)
Quarter: 2011Q2

REPORT INFORMATION
  Report Type: 
  Country: None (occurrence: None)
  Receive Date: 20110513
  Receipt Date: 20110504
  Transmission Date: 20111010
  Serious: Yes (Hospitalization)
  Sender: FDA-Public Use
  Company Number: US-SOLVAY-00211003628

PATIENT
  Age: 26407 Day
  Sex: Male
  Weight: 94 kg

DRUGS (11)
  1. ACETAMINOPHEN [Concomitant]
     Indication: OSTEOARTHRITIS
     Dosage: DAILY DOSE: 3000 MILLIGRAM(S)
     Route: 048
     Dates: start: 20110404
  2. ANDROGEL [Suspect]
     Indication: BLOOD TESTOSTERONE DECREASED
     Dosage: DAILY DOSE: 7.5 GRAM(S)
     Route: 062
     Dates: start: 20080424
  3. CLARITIN [Concomitant]
     Indication: HYPERSENSITIVITY
     Dosage: DAILY DOSE:  UNKNOWN, AS USED: 10 MG, FREQUENCY: AS NEEDED
     Route: 048
     Dates: start: 20110404
  4. ZOCOR [Concomitant]
     Indication: HYPERLIPIDAEMIA
     Dosage: DAILY DOSE: 40 MILLIGRAM(S)
     Route: 048
     Dates: start: 20070101
  5. METFFORMIN HYDROCHLORIDE [Concomitant]
     Indication: TYPE 2 DIABETES MELLITUS
     Dosage: DAILY DOSE: 2000 MILLIGRAM(S)
     Route: 048
     Dates: start: 20010101
  6. ATENOLOL [Concomitant]
     Indication: HYPERTENSION
     Dosage: DAILY DOSE:  UNKNOWN
     Route: 065
  7. LEVITRA [Concomitant]
     Indication: ERECTILE DYSFUNCTION
     Dosage: DAILY DOSE:  UNKNOWN, AS USED: 20 MG, FREQUENCY: AS NEEDED
     Route: 048
  8. TOPROL-XL [Concomitant]
     Indication: ESSENTIAL HYPERTENSION
     Dosage: DAILY DOSE: 25 MILLIGRAM(S)
     Route: 048
     Dates: start: 20110404
  9. RANITIDINE HYDROCHLORIDE [Concomitant]
     Indication: DYSPEPSIA
     Dosage: DAILY DOSE: 300 MILLIGRAM(S)
     Route: 048
     Dates: start: 20110404
  10. LISINOPRIL [Concomitant]
     Indication: ESSENTIAL HYPERTENSION
     Dosage: DAILY DOSE: 40 MICROGRAM(S)
     Route: 048
     Dates: start: 20070101, end: 20110404
  11. NAPROSYN [Concomitant]
     Indication: OSTEOARTHRITIS
     Dosage: DAILY DOSE: 1000 MILLIGRAM(S)
     Route: 048
     Dates: start: 20110404

REACTIONS (1)
  - ATRIOVENTRICULAR BLOCK SECOND DEGREE [None]
